FAERS Safety Report 21846772 (Version 3)
Quarter: 2023Q1

REPORT INFORMATION
  Report Type: Spontaneous
  Country: FR (occurrence: FR)
  Receive Date: 20230111
  Receipt Date: 20230201
  Transmission Date: 20230418
  Serious: Yes (Hospitalization)
  Sender: FDA-Public Use
  Company Number: FR-002147023-NVSC2023FR005279

PATIENT
  Sex: Female
  Weight: 7.9 kg

DRUGS (1)
  1. ZOLGENSMA [Suspect]
     Active Substance: ONASEMNOGENE ABEPARVOVEC-XIOI
     Indication: Spinal muscular atrophy
     Dosage: 8.3 ML (4 BOTTLES), ONCE/SINGLE
     Route: 042
     Dates: start: 20211119, end: 20211119

REACTIONS (3)
  - Respiratory failure [Not Recovered/Not Resolved]
  - Scoliosis [Unknown]
  - Influenza [Unknown]
